FAERS Safety Report 17678061 (Version 1)
Quarter: 2020Q2

REPORT INFORMATION
  Report Type: Spontaneous
  Country: US (occurrence: US)
  Receive Date: 20200417
  Receipt Date: 20200417
  Transmission Date: 20200714
  Serious: No
  Sender: FDA-Public Use
  Company Number: US-GLENMARK PHARMACEUTICALS-2020GMK045433

PATIENT

DRUGS (3)
  1. IMIQUIMOD CREAM USP, 5% [Suspect]
     Active Substance: IMIQUIMOD
     Indication: SQUAMOUS CELL CARCINOMA
     Dosage: UNK
     Route: 065
  2. IMIQUIMOD CREAM USP, 5% [Suspect]
     Active Substance: IMIQUIMOD
     Indication: PRECANCEROUS SKIN LESION
  3. IMIQUIMOD CREAM USP, 5% [Suspect]
     Active Substance: IMIQUIMOD
     Indication: ACTINIC KERATOSIS

REACTIONS (1)
  - Product use in unapproved indication [Unknown]
